FAERS Safety Report 24862052 (Version 2)
Quarter: 2025Q3

REPORT INFORMATION
  Report Type: Spontaneous
  Country: US (occurrence: US)
  Receive Date: 20250120
  Receipt Date: 20250809
  Transmission Date: 20251020
  Serious: Yes (Death)
  Sender: ALEXION PHARMACEUTICALS
  Company Number: US-SA-2025SA011626

PATIENT
  Age: 15 Month
  Sex: Female

DRUGS (1)
  1. BEYFORTUS [Suspect]
     Active Substance: NIRSEVIMAB-ALIP
     Indication: Antiviral prophylaxis
     Route: 065

REACTIONS (1)
  - Respiratory syncytial virus infection [Fatal]

NARRATIVE: CASE EVENT DATE: 20250112
